FAERS Safety Report 10358034 (Version 3)
Quarter: 2024Q4

REPORT INFORMATION
  Report Type: Spontaneous
  Country: ES (occurrence: ES)
  Receive Date: 20140801
  Receipt Date: 20241127
  Transmission Date: 20250115
  Serious: Yes (Hospitalization)
  Sender: AMGEN
  Company Number: ES-AMGEN-ESPSP2014055642

PATIENT
  Age: 65 Year
  Sex: Female

DRUGS (3)
  1. PROLIA [Suspect]
     Active Substance: DENOSUMAB
     Indication: Osteoporosis
     Dosage: UNK, (60 MG)
     Route: 065
     Dates: start: 201407
  2. CALCIUM [Concomitant]
     Active Substance: CALCIUM
  3. OMEPRAZOLE [Concomitant]
     Active Substance: OMEPRAZOLE
     Indication: Gastrointestinal disorder

REACTIONS (11)
  - Adverse event [Unknown]
  - Peripheral swelling [Recovering/Resolving]
  - Pain [Recovered/Resolved]
  - Headache [Unknown]
  - Neck pain [Recovered/Resolved]
  - Gait disturbance [Unknown]
  - Blood pressure increased [Unknown]
  - Myalgia [Unknown]
  - Back pain [Recovered/Resolved]
  - Arthralgia [Unknown]
  - Pain in extremity [Recovered/Resolved]

NARRATIVE: CASE EVENT DATE: 20140701
